FAERS Safety Report 20015476 (Version 1)
Quarter: 2021Q4

REPORT INFORMATION
  Report Type: Spontaneous
  Country: US (occurrence: None)
  Receive Date: 20211031
  Receipt Date: 20211031
  Transmission Date: 20220304
  Serious: No
  Sender: FDA-Public Use
  Company Number: None

PATIENT
  Age: 25 Year
  Sex: Female
  Weight: 62.1 kg

DRUGS (1)
  1. DEPO-PROVERA [Suspect]
     Active Substance: MEDROXYPROGESTERONE ACETATE
     Indication: Contraception
     Dosage: OTHER FREQUENCY : 12 WEEKS;?
     Route: 058

REACTIONS (4)
  - Influenza like illness [None]
  - Emotional distress [None]
  - Hyperhidrosis [None]
  - Arthralgia [None]

NARRATIVE: CASE EVENT DATE: 20210906
